FAERS Safety Report 5510917-2 (Version None)
Quarter: 2007Q4

REPORT INFORMATION
  Report Type: 
  Country: None (occurrence: None)
  Receive Date: 20071109
  Receipt Date: 20071105
  Transmission Date: 20080405
  Serious: Yes (Death)
  Sender: FDA-Public Use
  Company Number: JP-SP-2007-03300

PATIENT
  Age: 70 Year
  Sex: Male

DRUGS (2)
  1. IMMUCYST [Suspect]
     Indication: CARCINOMA IN SITU OF BLADDER
     Route: 043
     Dates: start: 20070219, end: 20070413
  2. IMMUCYST [Suspect]
     Route: 043
     Dates: start: 20070219, end: 20070413

REACTIONS (3)
  - INCORRECT DRUG DOSAGE FORM ADMINISTERED [None]
  - METASTASES TO LIVER [None]
  - PYREXIA [None]
